FAERS Safety Report 9119618 (Version 1)
Quarter: 2013Q1

REPORT INFORMATION
  Report Type: Spontaneous
  Country: US (occurrence: US)
  Receive Date: 20130226
  Receipt Date: 20130226
  Transmission Date: 20140127
  Serious: Yes (Other)
  Sender: FDA-Public Use
  Company Number: US-PFIZER INC-2013066001

PATIENT
  Age: 56 Year
  Sex: Female
  Weight: 56.69 kg

DRUGS (5)
  1. LYRICA [Suspect]
     Indication: FIBROMYALGIA
     Dosage: 150 MG, 2X/DAY
     Route: 048
  2. ALBUTEROL [Concomitant]
     Dosage: UNK
  3. ADVAIR [Concomitant]
     Dosage: UNK
  4. ZANTAC [Concomitant]
     Dosage: UNK
  5. ALEVE [Concomitant]
     Dosage: UNK

REACTIONS (7)
  - Gallbladder disorder [Unknown]
  - Intervertebral disc protrusion [Unknown]
  - Weight increased [Unknown]
  - Herpes zoster [Unknown]
  - Neuralgia [Unknown]
  - Body height decreased [Unknown]
  - Hypoaesthesia [Unknown]
